FAERS Safety Report 9743223 (Version 2)
Quarter: 2015Q3

REPORT INFORMATION
  Report Type: Spontaneous
  Country: US (occurrence: US)
  Receive Date: 20131210
  Receipt Date: 20150804
  Transmission Date: 20151125
  Serious: No
  Sender: FDA-Public Use
  Company Number: US-GILEAD-2009-0025043

PATIENT
  Age: 60 Year
  Sex: Female
  Weight: 62.6 kg

DRUGS (6)
  1. LETAIRIS [Suspect]
     Active Substance: AMBRISENTAN
     Indication: PULMONARY ARTERIAL HYPERTENSION
     Route: 048
     Dates: start: 20081220
  2. REVATIO [Concomitant]
     Active Substance: SILDENAFIL CITRATE
  3. PREMPRO [Concomitant]
     Active Substance: ESTROGENS, CONJUGATED\MEDROXYPROGESTERONE ACETATE
  4. REMERON [Concomitant]
     Active Substance: MIRTAZAPINE
  5. ZOCOR [Concomitant]
     Active Substance: SIMVASTATIN
  6. BUSPAR [Concomitant]
     Active Substance: BUSPIRONE HYDROCHLORIDE

REACTIONS (1)
  - Nasal congestion [Unknown]
